FAERS Safety Report 9311575 (Version 4)
Quarter: 2013Q4

REPORT INFORMATION
  Report Type: Report from Study
  Country: DE (occurrence: DE)
  Receive Date: 20130528
  Receipt Date: 20131018
  Transmission Date: 20140711
  Serious: Yes (Death, Hospitalization)
  Sender: FDA-Public Use
  Company Number: DE-SANOFI-AVENTIS-2013SA046382

PATIENT
  Age: 78 Year
  Sex: Male

DRUGS (15)
  1. AFLIBERCEPT [Suspect]
     Indication: COLORECTAL CANCER METASTATIC
     Route: 042
     Dates: start: 20130418, end: 20130418
  2. IRINOTECAN [Suspect]
     Indication: COLORECTAL CANCER METASTATIC
     Route: 042
     Dates: start: 20130507, end: 20130507
  3. IRINOTECAN [Suspect]
     Indication: COLORECTAL CANCER METASTATIC
     Route: 042
     Dates: start: 20130418, end: 20130418
  4. 5-FU [Suspect]
     Indication: COLORECTAL CANCER METASTATIC
     Route: 040
     Dates: start: 20130507, end: 20130507
  5. 5-FU [Suspect]
     Indication: COLORECTAL CANCER METASTATIC
     Route: 041
     Dates: start: 20130507, end: 20130507
  6. 5-FU [Suspect]
     Indication: COLORECTAL CANCER METASTATIC
     Route: 040
     Dates: start: 20130418, end: 20130418
  7. 5-FU [Suspect]
     Indication: COLORECTAL CANCER METASTATIC
     Route: 041
     Dates: start: 20130418, end: 20130418
  8. LEUCOVORIN [Suspect]
     Indication: COLORECTAL CANCER METASTATIC
     Route: 042
     Dates: start: 20130507, end: 20130507
  9. LEUCOVORIN [Suspect]
     Indication: COLORECTAL CANCER METASTATIC
     Route: 042
     Dates: start: 20130418, end: 20130418
  10. BETA BLOCKING AGENTS [Concomitant]
  11. CARBIMAZOL [Concomitant]
  12. TAMSULOSIN [Concomitant]
  13. PANTOZOL [Concomitant]
  14. NOVALGIN [Concomitant]
  15. GINKOBIL [Concomitant]
     Dates: start: 20130502, end: 20130522

REACTIONS (2)
  - Deep vein thrombosis [Not Recovered/Not Resolved]
  - General physical health deterioration [Fatal]
